FAERS Safety Report 8131780-X (Version None)
Quarter: 2012Q1

REPORT INFORMATION
  Report Type: 
  Country: None (occurrence: None)
  Receive Date: 20120213
  Receipt Date: 20120131
  Transmission Date: 20120608
  Serious: Yes (Hospitalization, Other)
  Sender: FDA-Public Use
  Company Number: BR-PFIZER INC-2012036080

PATIENT
  Age: 50 Year
  Sex: Female

DRUGS (7)
  1. CLOXAZOLAM [Concomitant]
     Dosage: UNK
  2. LEVOTHYROXINE SODIUM [Concomitant]
     Dosage: UNK
  3. BENICAR HCT [Suspect]
     Indication: HYPERTENSION
     Dosage: 20/12.5 MG, 1X/DAY
     Route: 048
     Dates: start: 20100101
  4. PREDNISONE TAB [Suspect]
     Indication: PULMONARY SARCOIDOSIS
     Dosage: UNK
     Route: 048
     Dates: start: 20110101, end: 20111201
  5. CLONAZEPAM [Suspect]
     Indication: DEPRESSION
     Dosage: 2 MG, UNK
     Route: 048
     Dates: start: 20111201
  6. DEFLAZACORT [Suspect]
     Indication: PULMONARY SARCOIDOSIS
     Dosage: 30 MG, UNK
     Route: 048
     Dates: start: 20111201
  7. SERTRALINE HYDROCHLORIDE [Suspect]
     Indication: DEPRESSION
     Dosage: 50 MG, UNK
     Route: 048
     Dates: start: 20111201

REACTIONS (7)
  - HYPERGLYCAEMIA [None]
  - FLUID RETENTION [None]
  - DEPRESSION [None]
  - PULMONARY SARCOIDOSIS [None]
  - DRUG INEFFECTIVE [None]
  - BLOOD PRESSURE INCREASED [None]
  - HYPOTENSION [None]
